FAERS Safety Report 5984709-4 (Version None)
Quarter: 2008Q4

REPORT INFORMATION
  Report Type: 
  Country: None (occurrence: None)
  Receive Date: 20081208
  Receipt Date: 20081203
  Transmission Date: 20090506
  Serious: Yes (Life-Threatening, Other)
  Sender: FDA-Public Use
  Company Number: US-ROXANE LABORATORIES, INC.-2008-RO-00332RO

PATIENT

DRUGS (2)
  1. MORPHINE [Suspect]
     Indication: POSTOPERATIVE ANALGESIA
  2. NALOXONE [Concomitant]
     Indication: APNOEIC ATTACK

REACTIONS (3)
  - APNOEIC ATTACK [None]
  - DEPRESSED LEVEL OF CONSCIOUSNESS [None]
  - MEDICATION ERROR [None]
